FAERS Safety Report 5484817-0 (Version None)
Quarter: 2007Q4

REPORT INFORMATION
  Report Type: 
  Country: None (occurrence: None)
  Receive Date: 20071012
  Receipt Date: 20071002
  Transmission Date: 20080405
  Serious: Yes (Other)
  Sender: FDA-Public Use
  Company Number: US-PFIZER INC-2007082518

PATIENT
  Sex: Female
  Weight: 148.8 kg

DRUGS (8)
  1. LYRICA [Suspect]
     Indication: INTERVERTEBRAL DISC PROTRUSION
     Dates: start: 20070925, end: 20071002
  2. SYNTHROID [Concomitant]
     Indication: AUTOIMMUNE THYROIDITIS
  3. ADDERALL 20 [Concomitant]
  4. CYMBALTA [Concomitant]
  5. BUSPAR [Concomitant]
  6. TOPAMAX [Concomitant]
  7. ATIVAN [Concomitant]
  8. AMBIEN [Concomitant]

REACTIONS (4)
  - ABDOMINAL PAIN UPPER [None]
  - DIARRHOEA [None]
  - HAEMATOCHEZIA [None]
  - MUCOUS STOOLS [None]
